FAERS Safety Report 17242437 (Version 1)
Quarter: 2020Q1

REPORT INFORMATION
  Report Type: Spontaneous
  Country: US (occurrence: US)
  Receive Date: 20200107
  Receipt Date: 20200107
  Transmission Date: 20200409
  Serious: Yes (Other)
  Sender: FDA-Public Use
  Company Number: US-AMNEAL PHARMACEUTICALS-2019-AMRX-03142

PATIENT
  Sex: Female
  Weight: 6 kg

DRUGS (2)
  1. VIGABATRIN. [Suspect]
     Active Substance: VIGABATRIN
     Dosage: DISSOLVE 3 PACKETS IN 30ML AND GIVE 30ML (1500MG) AT NIGHT
     Route: 048
  2. VIGABATRIN. [Suspect]
     Active Substance: VIGABATRIN
     Indication: EPILEPSY
     Dosage: DISSOLVE 2 PACKETS IN 20ML OF WATER AND GIVE 20ML (1000MG) IN MORNING
     Route: 048

REACTIONS (4)
  - Product dose omission [Unknown]
  - Vomiting [Unknown]
  - Prescribed overdose [Unknown]
  - Condition aggravated [Unknown]
